FAERS Safety Report 8773108 (Version 1)
Quarter: 2012Q4

REPORT INFORMATION
  Report Type: 
  Country: US (occurrence: US)
  Receive Date: 20120907
  Receipt Date: 20120907
  Transmission Date: 20130627
  Serious: Yes (Other)
  Sender: FDA-Public Use
  Company Number: GXBR2012US001841

PATIENT
  Age: 57 None
  Sex: Female
  Weight: 65.31 kg

DRUGS (7)
  1. AMITRIPTYLINE HCL TABLETS USP [Suspect]
     Indication: PAIN
     Dosage: 50 mg, QD
     Route: 048
     Dates: end: 201206
  2. AMITRIPTYLINE HCL TABLETS USP [Suspect]
     Dosage: dose tapered down over 5-6 weeks
     Route: 048
     Dates: start: 201206, end: 201207
  3. PREMARIN                                /NEZ/ [Concomitant]
     Indication: HORMONE REPLACEMENT THERAPY
     Dosage: 0.425 mg, QD
     Route: 048
  4. NEXIUM                             /01479302/ [Concomitant]
     Indication: GASTROOESOPHAGEAL REFLUX DISEASE
     Dosage: 40 mg, QD
     Route: 048
  5. TRILIPIX [Concomitant]
     Indication: BLOOD TRIGLYCERIDES INCREASED
     Dosage: UNK mg, QD
     Route: 048
  6. ZOCOR ^DIECKMANN^ [Concomitant]
     Indication: BLOOD CHOLESTEROL INCREASED
     Dosage: UNK mg, QD
     Route: 048
  7. ATENOLOL [Concomitant]
     Indication: HYPERTENSION
     Dosage: 50 mg, QD
     Route: 048

REACTIONS (13)
  - Hypertension [Recovering/Resolving]
  - Photophobia [Recovered/Resolved]
  - Nausea [Recovered/Resolved]
  - Headache [Recovered/Resolved]
  - Paraesthesia [Recovered/Resolved]
  - Ageusia [Recovered/Resolved]
  - Anosmia [Recovered/Resolved]
  - Palpitations [Recovered/Resolved]
  - Nervousness [Recovered/Resolved]
  - Pain [Recovered/Resolved]
  - Tinnitus [Recovered/Resolved]
  - Feeling jittery [None]
  - Nervous system disorder [None]
